FAERS Safety Report 8821125 (Version 1)
Quarter: 2012Q4

REPORT INFORMATION
  Report Type: 
  Country: FR (occurrence: FR)
  Receive Date: 20121002
  Receipt Date: 20121002
  Transmission Date: 20130627
  Serious: Yes (Other)
  Sender: FDA-Public Use
  Company Number: FR-WATSON-2012-17067

PATIENT
  Age: 66 Year
  Sex: Male

DRUGS (1)
  1. LEVETIRACETAM (UNKNOWN) [Suspect]
     Indication: PRODUCT USED FOR UNKNOWN INDICATION
     Route: 065

REACTIONS (2)
  - Tachycardia [Unknown]
  - Oedema [Recovered/Resolved]
